FAERS Safety Report 9249460 (Version 1)
Quarter: 2013Q2

REPORT INFORMATION
  Report Type: Spontaneous
  Country: US (occurrence: US)
  Receive Date: 20130423
  Receipt Date: 20130423
  Transmission Date: 20140414
  Serious: No
  Sender: FDA-Public Use
  Company Number: US-FOUGERA-2012FO001036

PATIENT
  Sex: 0

DRUGS (1)
  1. DESONIDE [Suspect]
     Indication: PRODUCT USED FOR UNKNOWN INDICATION
     Route: 001

REACTIONS (2)
  - Application site pain [Unknown]
  - Application site pruritus [Unknown]
